FAERS Safety Report 8497759 (Version 4)
Quarter: 2013Q2

REPORT INFORMATION
  Report Type: Spontaneous
  Country: US (occurrence: US)
  Receive Date: 20120406
  Receipt Date: 20130419
  Transmission Date: 20140414
  Serious: Yes (Death, Hospitalization)
  Sender: FDA-Public Use
  Company Number: US-B.I. PHARMACEUTICALS,INC./RIDGEFIELD-2012-BP-06292BP

PATIENT
  Age: 81 Year
  Sex: Female
  Weight: 63.05 kg

DRUGS (1)
  1. PRADAXA [Suspect]
     Dates: start: 20110326, end: 20110404

REACTIONS (4)
  - Haemorrhage [Fatal]
  - Exsanguination [Fatal]
  - Gastrointestinal haemorrhage [Unknown]
  - Pain [Unknown]
